FAERS Safety Report 5062527-1 (Version None)
Quarter: 2006Q3

REPORT INFORMATION
  Report Type: 
  Country: None (occurrence: None)
  Receive Date: 20060721
  Receipt Date: 20060704
  Transmission Date: 20061208
  Serious: No
  Sender: FDA-Public Use
  Company Number: CN200607000137

PATIENT
  Age: 64 Year
  Sex: Female
  Weight: 75 kg

DRUGS (4)
  1. PROZAC [Suspect]
     Indication: MAJOR DEPRESSION
     Dosage: 20 MG, DAILY (1/D), ORAL
     Route: 048
     Dates: start: 20060504
  2. ZYPREXA [Suspect]
     Indication: MAJOR DEPRESSION
     Dosage: 2.5 MG, DAILY (1/D), ORAL
     Route: 048
     Dates: start: 20060504
  3. INDAPAMIDE [Concomitant]
  4. ACENTERINE (ACETYLSALICYLIC ACID) [Concomitant]

REACTIONS (2)
  - FATIGUE [None]
  - VASCULAR PURPURA [None]
